FAERS Safety Report 4851726-7 (Version None)
Quarter: 2005Q4

REPORT INFORMATION
  Report Type: 
  Country: None (occurrence: None)
  Receive Date: 20051213
  Receipt Date: 20051013
  Transmission Date: 20060501
  Serious: Yes (Other)
  Sender: FDA-Public Use
  Company Number: CH-SOLVAY-00305003233

PATIENT
  Age: 312 Month
  Sex: Male

DRUGS (5)
  1. SOLIAN [Concomitant]
     Indication: SCHIZOPHRENIA
     Dosage: DAILY DOSE: 200 MILLIGRAM(S)
     Route: 048
     Dates: start: 20050201, end: 20050401
  2. SOLIAN [Concomitant]
     Dosage: DAILY DOSE: 300 MILLIGRAM(S)
     Route: 048
     Dates: start: 20050401, end: 20050801
  3. SOLIAN [Concomitant]
     Dosage: DAILY DOSE: 500 MILLIGRAM(S)
     Route: 048
     Dates: start: 20050801
  4. FLUVOXAMINE MALEATE [Suspect]
     Indication: DEPRESSED MOOD
     Dosage: DAILY DOSE: 100 MILLIGRAM(S)
     Route: 048
     Dates: start: 20050201
  5. XANAX [Concomitant]
     Indication: ILL-DEFINED DISORDER
     Dosage: DAILY DOSE: 1 MILLIGRAM(S)
     Route: 065

REACTIONS (6)
  - DIFFICULTY IN WALKING [None]
  - DRUG LEVEL INCREASED [None]
  - FATIGUE [None]
  - OVERDOSE [None]
  - TREATMENT NONCOMPLIANCE [None]
  - TREMOR [None]
